FAERS Safety Report 8881944 (Version 1)
Quarter: 2012Q4

REPORT INFORMATION
  Report Type: 
  Country: CN (occurrence: CN)
  Receive Date: 20121105
  Receipt Date: 20121105
  Transmission Date: 20130627
  Serious: Yes (Hospitalization)
  Sender: FDA-Public Use
  Company Number: CN-BAYER-2012-115034

PATIENT
  Age: 64 Year
  Sex: Male
  Weight: 52 kg

DRUGS (2)
  1. GLUCOBAY [Suspect]
     Indication: HYPERGLYCEMIA
     Dosage: 50 mg, TID
     Route: 048
     Dates: start: 20110911, end: 20110911
  2. REPAGLINIDE [Suspect]

REACTIONS (1)
  - Erectile dysfunction [Recovering/Resolving]
